FAERS Safety Report 9886508 (Version 1)
Quarter: 2014Q1

REPORT INFORMATION
  Report Type: Spontaneous
  Country: CA (occurrence: CA)
  Receive Date: 20140210
  Receipt Date: 20140210
  Transmission Date: 20141002
  Serious: Yes (Hospitalization, Other)
  Sender: FDA-Public Use
  Company Number: PHHY2014CA016162

PATIENT
  Sex: Female
  Weight: 86.18 kg

DRUGS (4)
  1. TRILEPTAL [Suspect]
     Dosage: 1800.0 MG, QD
     Route: 048
  2. TRILEPTAL [Suspect]
     Dosage: 600.0 MG, QD
     Route: 048
  3. TRILEPTAL [Suspect]
     Dosage: 1200.0 MG, BID
     Route: 048
  4. ATIVAN [Concomitant]
     Dosage: UNK UKN, UNK

REACTIONS (5)
  - Petit mal epilepsy [Not Recovered/Not Resolved]
  - Grand mal convulsion [Not Recovered/Not Resolved]
  - Hyponatraemia [Not Recovered/Not Resolved]
  - Nausea [Not Recovered/Not Resolved]
  - Vomiting [Not Recovered/Not Resolved]
